FAERS Safety Report 15778557 (Version 2)
Quarter: 2019Q2

REPORT INFORMATION
  Report Type: Spontaneous
  Country: US (occurrence: US)
  Receive Date: 20181231
  Receipt Date: 20190529
  Transmission Date: 20190711
  Serious: No
  Sender: FDA-Public Use
  Company Number: US-ACTELION-A-NJ2018-183438

PATIENT
  Age: 65 Year
  Sex: Female
  Weight: 93.42 kg

DRUGS (6)
  1. TYVASO [Suspect]
     Active Substance: TREPROSTINIL
     Dosage: 9 PUFF, Q6HRS
     Route: 055
  2. TYVASO [Suspect]
     Active Substance: TREPROSTINIL
     Dosage: 6 PUFF, Q6HRS
     Route: 055
  3. TYVASO [Suspect]
     Active Substance: TREPROSTINIL
     Dosage: UNK
     Route: 055
  4. TRACLEER [Suspect]
     Active Substance: BOSENTAN
     Indication: PULMONARY ARTERIAL HYPERTENSION
     Dosage: 125 MG, BID
     Route: 048
  5. TYVASO [Suspect]
     Active Substance: TREPROSTINIL
     Indication: PULMONARY ARTERIAL HYPERTENSION
     Dosage: 9  PUFF, UNK
     Route: 055
     Dates: start: 20181120
  6. TYVASO [Suspect]
     Active Substance: TREPROSTINIL
     Dosage: 6 PUFF, UNK
     Route: 055
     Dates: start: 20181130

REACTIONS (5)
  - Malaise [Unknown]
  - Oropharyngeal pain [Unknown]
  - Headache [Unknown]
  - Diarrhoea [Recovering/Resolving]
  - Nausea [Unknown]

NARRATIVE: CASE EVENT DATE: 20181120
